FAERS Safety Report 7916922-0 (Version None)
Quarter: 2011Q4

REPORT INFORMATION
  Report Type: 
  Country: None (occurrence: None)
  Receive Date: 20111114
  Receipt Date: 20111031
  Transmission Date: 20120403
  Serious: Yes (Hospitalization, Other)
  Sender: FDA-Public Use
  Company Number: 125780

PATIENT
  Age: 54 Year
  Sex: Female

DRUGS (1)
  1. CERUBIDINE [Suspect]
     Indication: ACUTE LEUKAEMIA
     Dosage: 120MG, 1X/DAY, IV
     Route: 042
     Dates: start: 20100526, end: 20100528

REACTIONS (1)
  - ENCEPHALITIS [None]
